FAERS Safety Report 7020176-X (Version None)
Quarter: 2010Q3

REPORT INFORMATION
  Report Type: 
  Country: None (occurrence: None)
  Receive Date: 20100927
  Receipt Date: 20100910
  Transmission Date: 20110219
  Serious: Yes (Other)
  Sender: FDA-Public Use
  Company Number: AUR-APL-2010-02265

PATIENT
  Sex: Male

DRUGS (2)
  1. RIBAVIRIN [Suspect]
  2. PLAN B PILL [Concomitant]

REACTIONS (3)
  - CONGENITAL ANOMALY [None]
  - MATERNAL DRUGS AFFECTING FOETUS [None]
  - PHYSICAL ASSAULT [None]
